FAERS Safety Report 22102716 (Version 2)
Quarter: 2023Q2

REPORT INFORMATION
  Report Type: Spontaneous
  Country: US (occurrence: US)
  Receive Date: 20230316
  Receipt Date: 20230405
  Transmission Date: 20230722
  Serious: Yes (Hospitalization)
  Sender: FDA-Public Use
  Company Number: US-UNITED THERAPEUTICS-UNT-2023-005148

PATIENT
  Age: 14 Year
  Sex: Male
  Weight: 65.76 kg

DRUGS (6)
  1. REMODULIN [Suspect]
     Active Substance: TREPROSTINIL
     Indication: Pulmonary arterial hypertension
     Dosage: 0.036 ?G/KG, CONTINUING (SELF-FILL CASSETTE WITH 2.8 ML; RATE OF 32 MCL PER HOUR)
     Route: 058
     Dates: start: 202302
  2. REMODULIN [Suspect]
     Active Substance: TREPROSTINIL
     Dosage: 0.038 ?G/KG (SELF-FILL CASSETTE WITH 2.9 ML AT A RATE OF 33 MCL/HOUR), CONTINUING
     Route: 058
  3. REMODULIN [Suspect]
     Active Substance: TREPROSTINIL
     Dosage: UNK, CONTINUING
     Route: 058
     Dates: start: 20230214
  4. REMODULIN [Suspect]
     Active Substance: TREPROSTINIL
     Indication: Pulmonary arterial hypertension
     Dosage: UNK
     Route: 041
     Dates: end: 202302
  5. OPSUMIT [Concomitant]
     Active Substance: MACITENTAN
     Indication: Product used for unknown indication
     Dosage: UNK
     Route: 065
  6. TADALAFIL [Concomitant]
     Active Substance: TADALAFIL
     Indication: Product used for unknown indication
     Dosage: UNK
     Route: 065

REACTIONS (3)
  - Device dislocation [Recovered/Resolved]
  - Infusion site pain [Unknown]
  - Seasonal allergy [Unknown]

NARRATIVE: CASE EVENT DATE: 20230201
